FAERS Safety Report 4717966-2 (Version None)
Quarter: 2005Q3

REPORT INFORMATION
  Report Type: 
  Country: None (occurrence: None)
  Receive Date: 20050718
  Receipt Date: 20050127
  Transmission Date: 20060218
  Serious: No
  Sender: FDA-Public Use
  Company Number: 2005000219

PATIENT
  Age: 65 Year
  Sex: Female

DRUGS (4)
  1. TARCEVA [Suspect]
     Indication: NON-SMALL CELL LUNG CANCER
     Dosage: 150 MG (QD), ORAL
     Route: 048
     Dates: start: 20050113, end: 20050130
  2. PANTOPRAZOLE SODIUM [Concomitant]
  3. HYDROCODONE(HYDROCODONE) [Concomitant]
  4. RADIOTHERAPY [Concomitant]

REACTIONS (4)
  - NAUSEA [None]
  - PAROSMIA [None]
  - URINARY TRACT INFECTION [None]
  - VOMITING [None]
